FAERS Safety Report 8277698-3 (Version None)
Quarter: 2012Q2

REPORT INFORMATION
  Report Type: 
  Country: None (occurrence: None)
  Receive Date: 20120412
  Receipt Date: 20120410
  Transmission Date: 20120825
  Serious: Yes (Other)
  Sender: FDA-Public Use
  Company Number: US-PFIZER INC-2012045863

PATIENT
  Sex: Male

DRUGS (11)
  1. LISINOPRIL AND HYDROCHLOROTHIAZIDE [Concomitant]
     Dosage: 20-12.5 MG, (1 TABLET DAILY)
     Route: 048
     Dates: start: 20080904
  2. CELEBREX [Concomitant]
     Dosage: 200 MG, (TAKE ONE CAPSULE BY MOUTH EVERY DAY)
     Route: 048
     Dates: start: 20091211
  3. SEMPREX-D [Concomitant]
     Indication: RHINITIS ALLERGIC
     Dosage: 8-60 MG, (TAKE 1 TABLET EVERY 6 HOURS AS NEEDED)
     Route: 048
     Dates: start: 20060124
  4. VIAGRA [Concomitant]
     Indication: ERECTILE DYSFUNCTION
     Dosage: 100 MG, (TAKE 1 TABLET DAILY 1 HOUR BEFORE NEEDED)
     Route: 048
     Dates: start: 20111017
  5. NITROSTAT [Concomitant]
     Dosage: 0.4 MG, AS NEEDED (PLACE 1 TABLET AS NEEDED SUBLING EVERY 5 MINUTES MAY TAKE 3 IN FIFTEEN MI
     Route: 060
     Dates: start: 20060314
  6. SIMVASTATIN [Concomitant]
     Dosage: 40 MG, (TAKE 1 TABLET BY MOUTH EVERY EVENING)
     Route: 048
     Dates: start: 20091102
  7. DILTIAZEM HYDROCHLORIDE [Concomitant]
     Dosage: 180 MG, 1X/DAY (ONE TABLET BY MOUTH EVERY DAY)
     Dates: start: 20091102
  8. PERCOCET [Concomitant]
     Dosage: 5-325 MG, (TAKE 1 TABLET EVERY 4-6 HOURS PRN 1-2 TABS PNR)
     Route: 048
     Dates: start: 20090210
  9. ZOLPIDEM TARTRATE [Concomitant]
     Dosage: 12.5 MG, (TAKE 1 TABLET AT BEDTIME)
     Route: 048
     Dates: start: 20110705
  10. LYRICA [Suspect]
     Dosage: 150 MG, 2X/DAY (1 CAPSULE TWICE DAILY)
     Route: 048
     Dates: start: 20120320
  11. AMITRIPTYLINE HYDROCHLORIDE [Concomitant]
     Dosage: 10 MG, (1 PO QHS AND IF GI SX NOT BETTER IN 1 WK, INCR TO 2 PO QHS)
     Route: 048
     Dates: start: 20110512

REACTIONS (2)
  - ARTHRITIS [None]
  - BACK DISORDER [None]
